FAERS Safety Report 4857302-4 (Version None)
Quarter: 2005Q4

REPORT INFORMATION
  Report Type: 
  Country: None (occurrence: None)
  Receive Date: 20051215
  Receipt Date: 20051215
  Transmission Date: 20060501
  Serious: Yes (Hospitalization, Other)
  Sender: FDA-Public Use
  Company Number: None

PATIENT
  Sex: Male
  Weight: 82.4 kg

DRUGS (4)
  1. CYCLOPHOSPHAMIDE [Suspect]
     Indication: ACUTE LYMPHOCYTIC LEUKAEMIA
     Dosage: SEE IMAGE
     Route: 042
     Dates: start: 20051118
  2. ALLOPURINOL [Suspect]
     Dosage: SEE IMAGE
     Route: 048
     Dates: start: 20051201
  3. DAUNORUBICIN [Suspect]
     Dosage: SEE IMAGE
     Route: 042
     Dates: start: 20051120
  4. DEXAMETHASONE [Suspect]
     Dosage: SEE IMAGE

REACTIONS (5)
  - AXILLARY VEIN THROMBOSIS [None]
  - BLOOD FIBRINOGEN DECREASED [None]
  - FIBRIN DEGRADATION PRODUCTS INCREASED [None]
  - SUBCLAVIAN VEIN THROMBOSIS [None]
  - VENOUS THROMBOSIS [None]
